FAERS Safety Report 25723182 (Version 1)
Quarter: 2025Q3

REPORT INFORMATION
  Report Type: Spontaneous
  Country: US (occurrence: None)
  Receive Date: 20250822
  Receipt Date: 20250822
  Transmission Date: 20251020
  Serious: Yes (Hospitalization)
  Sender: FDA-CTU
  Company Number: None

PATIENT
  Sex: Female
  Weight: 60.75 kg

DRUGS (3)
  1. WINREVAIR [Suspect]
     Active Substance: SOTATERCEPT-CSRK
     Indication: Pulmonary arterial hypertension
     Route: 058
     Dates: start: 20240815
  2. NORMAL SALINE FLUSH (10ML) [Concomitant]
  3. SODIUM CHLOR SDV (50ML/FTV) [Concomitant]

REACTIONS (2)
  - Pregnancy [None]
  - Right ventricular failure [None]
